FAERS Safety Report 5142950-7 (Version None)
Quarter: 2006Q4

REPORT INFORMATION
  Report Type: 
  Country: None (occurrence: None)
  Receive Date: 20061027
  Receipt Date: 20061017
  Transmission Date: 20070319
  Serious: Yes (Hospitalization, Other)
  Sender: FDA-Public Use
  Company Number: HQWYE186217OCT06

PATIENT
  Age: 15 Year
  Sex: Male

DRUGS (2)
  1. ADVIL [Suspect]
     Indication: INFECTION
     Dosage: 200 MG TABLET TWO TO THREE TIMES DAILY
     Route: 048
     Dates: start: 20060929
  2. ADVIL [Suspect]
     Indication: PYREXIA
     Dosage: 200 MG TABLET TWO TO THREE TIMES DAILY
     Route: 048
     Dates: start: 20060929

REACTIONS (3)
  - DEPRESSED LEVEL OF CONSCIOUSNESS [None]
  - HYPOTHERMIA [None]
  - MIOSIS [None]
